FAERS Safety Report 20176721 (Version 2)
Quarter: 2022Q2

REPORT INFORMATION
  Report Type: Spontaneous
  Country: FR (occurrence: FR)
  Receive Date: 20211213
  Receipt Date: 20220606
  Transmission Date: 20220720
  Serious: Yes (Congenital Anomaly, Other)
  Sender: FDA-Public Use
  Company Number: FR-NOVARTISPH-NVSC2021FR111147

PATIENT
  Sex: Female

DRUGS (5)
  1. CARBAMAZEPINE [Suspect]
     Active Substance: CARBAMAZEPINE
     Indication: Foetal exposure during pregnancy
     Dosage: 300 MG, BID
     Route: 064
     Dates: start: 1998, end: 19990414
  2. CARBAMAZEPINE [Suspect]
     Active Substance: CARBAMAZEPINE
     Dosage: UNK, TEGRETOL 200 LP
     Route: 065
  3. VALPROATE SODIUM [Suspect]
     Active Substance: VALPROATE SODIUM
     Indication: Foetal exposure during pregnancy
     Dosage: 2 DF, QD
     Route: 064
     Dates: start: 1998, end: 19990414
  4. FOLIC ACID [Concomitant]
     Active Substance: FOLIC ACID
     Indication: Foetal exposure during pregnancy
     Dosage: (MOTHER DOSE- UNKNOWN)
     Route: 064
  5. FOLIC ACID [Concomitant]
     Active Substance: FOLIC ACID
     Dosage: UNK
     Route: 064

REACTIONS (23)
  - Behaviour disorder [Unknown]
  - Disturbance in attention [Unknown]
  - Developmental delay [Unknown]
  - Psychomotor retardation [Unknown]
  - Intellectual disability [Unknown]
  - Congenital musculoskeletal disorder of limbs [Unknown]
  - Social avoidant behaviour [Unknown]
  - Congenital musculoskeletal disorder of spine [Unknown]
  - Language disorder [Unknown]
  - Learning disability [Unknown]
  - Scoliosis [Unknown]
  - Educational problem [Unknown]
  - Epilepsy [Unknown]
  - Neurodevelopmental disorder [Unknown]
  - Hypermobility syndrome [Unknown]
  - Dysmorphism [Unknown]
  - Haemangioma [Unknown]
  - Hypotonia [Unknown]
  - Foetal exposure during pregnancy [Unknown]
  - Oropharyngeal discomfort [Unknown]
  - Nasal disorder [Unknown]
  - Ocular discomfort [Unknown]
  - Ear disorder [Unknown]

NARRATIVE: CASE EVENT DATE: 19990414
